FAERS Safety Report 20369146 (Version 1)
Quarter: 2022Q1

REPORT INFORMATION
  Report Type: Spontaneous
  Country: US (occurrence: US)
  Receive Date: 20220124
  Receipt Date: 20220124
  Transmission Date: 20220423
  Serious: Yes (Other)
  Sender: FDA-Public Use
  Company Number: US-009507513-2201USA005352

PATIENT
  Sex: Female

DRUGS (2)
  1. KEYTRUDA [Suspect]
     Active Substance: PEMBROLIZUMAB
     Dosage: UNK
  2. LENVATINIB MESYLATE [Suspect]
     Active Substance: LENVATINIB MESYLATE
     Indication: Uterine cancer
     Dosage: 10 MILLIGRAM DAILY
     Route: 048
     Dates: start: 20211112

REACTIONS (4)
  - Dementia [Not Recovered/Not Resolved]
  - Dysarthria [Unknown]
  - Peripheral swelling [Unknown]
  - Dysstasia [Unknown]

NARRATIVE: CASE EVENT DATE: 20211229
